FAERS Safety Report 9112503 (Version 1)
Quarter: 2013Q1

REPORT INFORMATION
  Report Type: Spontaneous
  Country: CA (occurrence: CA)
  Receive Date: 20130211
  Receipt Date: 20130211
  Transmission Date: 20140127
  Serious: Yes (Disabling)
  Sender: FDA-Public Use
  Company Number: CA-ASTRAZENECA-2013SE07389

PATIENT
  Age: 77 Year
  Sex: Female

DRUGS (12)
  1. NEXIUM [Suspect]
     Indication: GASTROOESOPHAGEAL REFLUX DISEASE
     Route: 048
     Dates: start: 2011
  2. NEXIUM [Suspect]
     Indication: GASTROOESOPHAGEAL REFLUX DISEASE
     Route: 048
  3. TAMOXIFEN [Concomitant]
     Dosage: GENERIC
     Route: 048
     Dates: start: 2012
  4. SYNTHROID [Concomitant]
     Route: 048
  5. CALCIUM MAGNESSIUM [Concomitant]
     Route: 048
  6. VITAMIN D [Concomitant]
  7. OMEGA 3 [Concomitant]
  8. ENZYMES [Concomitant]
  9. CAT CLAW [Concomitant]
  10. CRANBERRY EXTRACT [Concomitant]
  11. B 50 COMPLEX [Concomitant]
  12. HALIBUT LIVER OIL [Concomitant]

REACTIONS (4)
  - Gastrooesophageal reflux disease [Recovering/Resolving]
  - Abdominal pain upper [Recovering/Resolving]
  - Anxiety disorder due to a general medical condition [Unknown]
  - Drug ineffective [Unknown]
